FAERS Safety Report 7363837-5 (Version None)
Quarter: 2011Q1

REPORT INFORMATION
  Report Type: 
  Country: None (occurrence: None)
  Receive Date: 20110321
  Receipt Date: 20110316
  Transmission Date: 20110831
  Serious: Yes (Disabling, Other)
  Sender: FDA-Public Use
  Company Number: GB-ROCHE-759387

PATIENT
  Sex: Female
  Weight: 79 kg

DRUGS (9)
  1. ETANERCEPT [Concomitant]
     Route: 065
     Dates: start: 20080101, end: 20100101
  2. CALCICHEW D3 [Concomitant]
     Route: 065
  3. PREDNISOLONE [Concomitant]
     Route: 065
  4. ACETAMINOPHEN WITH PROPOXYPHENE HCL TAB [Concomitant]
     Route: 065
  5. D-PENICILLAMINE [Concomitant]
     Route: 065
  6. METHOTREXATE [Concomitant]
     Route: 065
     Dates: start: 19860101
  7. BUTRANS [Concomitant]
     Route: 065
  8. ROACTEMRA [Suspect]
     Indication: RHEUMATOID ARTHRITIS
     Route: 042
     Dates: start: 20101223, end: 20110126
  9. FOLIC ACID [Concomitant]
     Route: 065

REACTIONS (5)
  - INTRAOCULAR PRESSURE INCREASED [None]
  - BLINDNESS [None]
  - LENS DISORDER [None]
  - PUPILLARY DISORDER [None]
  - EYE PAIN [None]
